FAERS Safety Report 5312419-5 (Version None)
Quarter: 2007Q2

REPORT INFORMATION
  Report Type: 
  Country: None (occurrence: None)
  Receive Date: 20070430
  Receipt Date: 20061113
  Transmission Date: 20071010
  Serious: No
  Sender: FDA-Public Use
  Company Number: 2006UW23831

PATIENT
  Age: 70 Year
  Sex: Male
  Weight: 116.1 kg

DRUGS (14)
  1. NEXIUM [Suspect]
     Indication: GASTROOESOPHAGEAL REFLUX DISEASE
     Route: 048
     Dates: start: 20060914
  2. ZOCOR [Concomitant]
  3. TINAMIN [Concomitant]
  4. TRIMIPRAMINE MALEATE [Concomitant]
  5. POTASSIUM CHLORIDE [Concomitant]
  6. DIAZEPAM [Concomitant]
  7. ASACOL [Concomitant]
  8. MACLOZEN [Concomitant]
  9. CHOLESTYRMAN [Concomitant]
  10. HYDROCODONE [Concomitant]
  11. PROPOXY [Concomitant]
  12. CHLORHEXIDINE [Concomitant]
  13. GLUCONATE [Concomitant]
  14. ORAL RINSE [Concomitant]

REACTIONS (3)
  - GINGIVAL PAIN [None]
  - STOMATITIS [None]
  - SWOLLEN TONGUE [None]
